FAERS Safety Report 8104362 (Version 4)
Quarter: 2013Q3

REPORT INFORMATION
  Report Type: Spontaneous
  Country: US (occurrence: US)
  Receive Date: 20110824
  Receipt Date: 20130910
  Transmission Date: 20140515
  Serious: Yes (Hospitalization)
  Sender: FDA-Public Use
  Company Number: US-GLAXOSMITHKLINE-A0915674A

PATIENT
  Age: 65 Year
  Sex: Male
  Weight: 115 kg

DRUGS (7)
  1. AVANDIA [Suspect]
     Indication: DIABETES MELLITUS
     Dosage: 4MG PER DAY
     Route: 048
     Dates: start: 20060915
  2. HCTZ [Concomitant]
  3. METOPROLOL [Concomitant]
  4. ROSUVASTATIN [Concomitant]
  5. METFORMIN [Concomitant]
  6. GLYBURIDE [Concomitant]
  7. GEMFIBROZIL [Concomitant]

REACTIONS (1)
  - Myocardial infarction [Not Recovered/Not Resolved]
